FAERS Safety Report 10187721 (Version 1)
Quarter: 2014Q2

REPORT INFORMATION
  Report Type: Spontaneous
  Country: US (occurrence: US)
  Receive Date: 20140522
  Receipt Date: 20140522
  Transmission Date: 20141212
  Serious: No
  Sender: FDA-Public Use
  Company Number: US-SANOFI-AVENTIS-2013SA087163

PATIENT
  Age: 82 Year
  Sex: Female

DRUGS (3)
  1. SOLOSTAR [Suspect]
     Indication: TYPE 2 DIABETES MELLITUS
  2. LANTUS SOLOSTAR [Suspect]
     Indication: TYPE 2 DIABETES MELLITUS
     Dosage: PRODUCT START DATE: 4 YERAS AGO DOSE:10 UNIT(S)
     Route: 058
  3. METFORMIN [Concomitant]

REACTIONS (2)
  - Feeling abnormal [Recovered/Resolved]
  - Extra dose administered [Unknown]
